FAERS Safety Report 5968112-9 (Version None)
Quarter: 2008Q4

REPORT INFORMATION
  Report Type: 
  Country: None (occurrence: None)
  Receive Date: 20081126
  Receipt Date: 20081118
  Transmission Date: 20090506
  Serious: Yes (Death, Hospitalization, Other)
  Sender: FDA-Public Use
  Company Number: US-ROCHE-576005

PATIENT
  Sex: Male
  Weight: 114.3 kg

DRUGS (7)
  1. PEG-INTERFERON A-2A (RO 25-8310) [Suspect]
     Indication: HEPATITIS C
     Route: 058
     Dates: start: 20071101
  2. RIBAVIRIN [Suspect]
     Indication: HEPATITIS C
     Route: 048
     Dates: start: 20071101
  3. LASIX [Concomitant]
     Dosage: FREQUENCY REPORTED AS DAILY
     Route: 048
  4. ALDACTACINE [Concomitant]
     Route: 048
  5. METHADONE HCL [Concomitant]
     Route: 048
  6. OXYCODONE HCL [Concomitant]
     Route: 048
  7. OMEPRAZOLE [Concomitant]
     Route: 048

REACTIONS (4)
  - DEATH [None]
  - JAUNDICE [None]
  - SEPSIS [None]
  - WAIST CIRCUMFERENCE INCREASED [None]
